FAERS Safety Report 6501223-8 (Version None)
Quarter: 2009Q4

REPORT INFORMATION
  Report Type: 
  Country: None (occurrence: None)
  Receive Date: 20091216
  Receipt Date: 20091008
  Transmission Date: 20100525
  Serious: No
  Sender: FDA-Public Use
  Company Number: A0810910A

PATIENT
  Age: 66 Year
  Sex: Female

DRUGS (3)
  1. NICOTINE POLACRILEX [Suspect]
     Indication: SMOKING CESSATION THERAPY
  2. FLORASTOR [Concomitant]
  3. METRONIDAZOLE [Concomitant]

REACTIONS (1)
  - DIARRHOEA [None]
